FAERS Safety Report 8618274-X (Version None)
Quarter: 2012Q3

REPORT INFORMATION
  Report Type: 
  Country: None (occurrence: None)
  Receive Date: 20120824
  Receipt Date: 20120816
  Transmission Date: 20120928
  Serious: Yes (Other)
  Sender: FDA-Public Use
  Company Number: US-BIOGENIDEC-2012BI031771

PATIENT
  Age: 33 Year
  Sex: Female
  Weight: 69 kg

DRUGS (4)
  1. TYLENOL [Concomitant]
     Indication: HEADACHE
     Route: 048
     Dates: start: 20050101
  2. ORTHO EVRA [Concomitant]
     Indication: CONTRACEPTION
     Route: 062
     Dates: start: 20051123
  3. ORTHO EVRA [Concomitant]
     Route: 062
     Dates: start: 20051123
  4. TYSABRI [Suspect]
     Indication: CROHN'S DISEASE
     Route: 042
     Dates: start: 20080909, end: 20120726

REACTIONS (1)
  - BREAST CANCER [None]
